FAERS Safety Report 9481478 (Version 2)
Quarter: 2013Q3

REPORT INFORMATION
  Report Type: Spontaneous
  Country: US (occurrence: US)
  Receive Date: 20130828
  Receipt Date: 20130828
  Transmission Date: 20140515
  Serious: Yes (Hospitalization)
  Sender: FDA-Public Use
  Company Number: US-AMGEN-KDL170439

PATIENT
  Sex: Male

DRUGS (1)
  1. ENBREL [Suspect]
     Indication: PSORIASIS
     Dosage: UNK UNK, UNK
     Route: 065
     Dates: start: 20060111

REACTIONS (5)
  - Nephrolithiasis [Unknown]
  - Calculus ureteric [Not Recovered/Not Resolved]
  - Diarrhoea [Unknown]
  - Testicular pain [Unknown]
  - Vomiting [Unknown]
